FAERS Safety Report 7299770-7 (Version None)
Quarter: 2011Q1

REPORT INFORMATION
  Report Type: 
  Country: None (occurrence: None)
  Receive Date: 20110217
  Receipt Date: 20110208
  Transmission Date: 20110831
  Serious: Yes (Hospitalization)
  Sender: FDA-Public Use
  Company Number: US-ASTRAZENECA-2010SE42998

PATIENT
  Age: 79 Year
  Sex: Female
  Weight: 74.8 kg

DRUGS (7)
  1. ASPIRIN [Concomitant]
  2. SYMBICORT [Suspect]
     Dosage: 640 MCG DAILY
     Route: 055
  3. VENTOLIN [Concomitant]
  4. SYMBICORT [Suspect]
     Indication: CHRONIC OBSTRUCTIVE PULMONARY DISEASE
     Dosage: 160/4.5 UG TWICE A DAY
     Route: 055
     Dates: start: 20090101
  5. THEOPHYLLINE [Concomitant]
  6. PREDNISONE [Concomitant]
  7. LISINOPRIL [Concomitant]

REACTIONS (3)
  - DRUG DOSE OMISSION [None]
  - DYSPNOEA EXERTIONAL [None]
  - DYSPNOEA [None]
